FAERS Safety Report 19275894 (Version 1)
Quarter: 2021Q2

REPORT INFORMATION
  Report Type: Spontaneous
  Country: GB (occurrence: GB)
  Receive Date: 20210519
  Receipt Date: 20210519
  Transmission Date: 20210717
  Serious: Yes (Other)
  Sender: FDA-Public Use
  Company Number: GB-MYLANLABS-2021M1028714

PATIENT
  Age: 14 Year
  Sex: Male
  Weight: 32 kg

DRUGS (6)
  1. FEXOFENADINE [Concomitant]
     Active Substance: FEXOFENADINE HYDROCHLORIDE
     Indication: ILL-DEFINED DISORDER
     Dosage: 30 MILLIGRAM, BID
     Dates: start: 20210512
  2. MOMETASONE [Concomitant]
     Active Substance: MOMETASONE
     Indication: ILL-DEFINED DISORDER
     Dosage: TWO SPRAYS DAILY
     Dates: start: 20210329, end: 20210426
  3. CLENIL MODULITE [Concomitant]
     Active Substance: BECLOMETHASONE DIPROPIONATE
     Indication: ILL-DEFINED DISORDER
     Dosage: ONE PUFF BD
     Dates: start: 20190325
  4. LORATADINE. [Suspect]
     Active Substance: LORATADINE
     Indication: ILL-DEFINED DISORDER
     Dosage: UNK
     Dates: start: 20210512
  5. AVAMYS [Concomitant]
     Active Substance: FLUTICASONE FUROATE
     Indication: ILL-DEFINED DISORDER
     Dosage: UNK UNK, QD
     Dates: start: 20210512
  6. BECLOMETASONE [Concomitant]
     Active Substance: BECLOMETHASONE DIPROPIONATE
     Indication: ILL-DEFINED DISORDER
     Dosage: TWO SPRAYS (100MICROGRAMS) INTO EACH NOSTRIL TW...
     Dates: start: 20210225, end: 20210325

REACTIONS (2)
  - Lip swelling [Recovered/Resolved]
  - Rash [Unknown]

NARRATIVE: CASE EVENT DATE: 20210512
